FAERS Safety Report 20254687 (Version 1)
Quarter: 2021Q4

REPORT INFORMATION
  Report Type: Spontaneous
  Country: NL (occurrence: NL)
  Receive Date: 20211230
  Receipt Date: 20211230
  Transmission Date: 20220303
  Serious: Yes (Other)
  Sender: FDA-Public Use
  Company Number: NL-LRB-00727973

PATIENT
  Age: 53 Year
  Sex: Female
  Weight: 85 kg

DRUGS (2)
  1. CINACALCET [Suspect]
     Active Substance: CINACALCET
     Indication: Blood calcium increased
     Dosage: 30 MILLIGRAM, ONCE A DAY (1X PER DAG 1 TABLET)
     Route: 065
     Dates: start: 20211203, end: 20211210
  2. LITHIUM CARBONATE [Concomitant]
     Active Substance: LITHIUM CARBONATE
     Indication: Product used for unknown indication
     Dosage: 800 MILLIGRAM
     Route: 065

REACTIONS (6)
  - Syncope [Recovering/Resolving]
  - Asthenia [Recovering/Resolving]
  - Sensation of foreign body [Recovering/Resolving]
  - Feeling abnormal [Recovering/Resolving]
  - Paraesthesia [Recovering/Resolving]
  - Visual impairment [Recovering/Resolving]

NARRATIVE: CASE EVENT DATE: 20211209
